FAERS Safety Report 17539224 (Version 1)
Quarter: 2020Q1

REPORT INFORMATION
  Report Type: Spontaneous
  Country: US (occurrence: US)
  Receive Date: 20200306
  Receipt Date: 20200306
  Transmission Date: 20200409
  Serious: Yes (Hospitalization)
  Sender: FDA-Public Use
  Company Number: None

PATIENT
  Age: 32 Year
  Sex: Female

DRUGS (1)
  1. HUMIRA [Suspect]
     Active Substance: ADALIMUMAB
     Indication: COLITIS ULCERATIVE
     Dosage: ?          OTHER STRENGTH:40MG/0.4ML;OTHER DOSE:1 PEN;?
     Route: 058
     Dates: start: 20200117

REACTIONS (3)
  - Nausea [None]
  - Abdominal pain [None]
  - Influenza [None]

NARRATIVE: CASE EVENT DATE: 20200305
